FAERS Safety Report 16693321 (Version 5)
Quarter: 2020Q1

REPORT INFORMATION
  Report Type: Spontaneous
  Country: US (occurrence: US)
  Receive Date: 20190812
  Receipt Date: 20200225
  Transmission Date: 20200409
  Serious: Yes (Other)
  Sender: FDA-Public Use
  Company Number: US-PFIZER INC-2018120880

PATIENT
  Age: 82 Year
  Sex: Male
  Weight: 88 kg

DRUGS (13)
  1. FLOMAX [Concomitant]
     Active Substance: TAMSULOSIN HYDROCHLORIDE
     Dosage: UNK, 1X/DAY
  2. LYRICA [Suspect]
     Active Substance: PREGABALIN
     Indication: CERVICAL SPINAL STENOSIS
     Dosage: 75 MG, 1X/DAY (1 TO 3 HOURS BEFORE BEDTIME IN THE EVENING ONCE A DAY)
     Route: 048
  3. ASPIRIN 81 [Concomitant]
     Active Substance: ASPIRIN
     Dosage: 81 MG, 1X/DAY
  4. MELOXICAM. [Concomitant]
     Active Substance: MELOXICAM
     Dosage: 15 MG, 1X/DAY
  5. PRILOSEC [Concomitant]
     Active Substance: OMEPRAZOLE MAGNESIUM
     Dosage: 20 MG, 1X/DAY
  6. LYRICA [Suspect]
     Active Substance: PREGABALIN
     Indication: PRURITUS
     Dosage: 75 MG, 1X/DAY (AT BEDTIME)
     Route: 048
     Dates: start: 201811
  7. LYRICA [Suspect]
     Active Substance: PREGABALIN
     Indication: PARAESTHESIA
     Dosage: 150 MG, 1X/DAY (AT NIGHT EVERY BEDTIME)
     Route: 048
     Dates: start: 20190917
  8. METFORMIN [Concomitant]
     Active Substance: METFORMIN HYDROCHLORIDE
     Dosage: 500 MG, 2X/DAY
  9. METOPROLOL. [Concomitant]
     Active Substance: METOPROLOL
     Dosage: 50 MG, 1X/DAY
  10. ATORVASTATIN [Concomitant]
     Active Substance: ATORVASTATIN
     Dosage: UNK, 1X/DAY
  11. PLAVIX [Concomitant]
     Active Substance: CLOPIDOGREL BISULFATE
     Dosage: 75 MG, 1X/DAY
  12. VALSARTAN HCTZ [Concomitant]
     Active Substance: HYDROCHLOROTHIAZIDE\VALSARTAN
     Dosage: UNK, 1X/DAY [VALSARTAN: 80, HYDROCHLOROTHIAZIDE: 12.5 MG]
  13. FINASTERIDE. [Concomitant]
     Active Substance: FINASTERIDE
     Dosage: 5 MG, 1X/DAY

REACTIONS (7)
  - Skin cancer [Unknown]
  - Tremor [Unknown]
  - Itching scar [Unknown]
  - Ear neoplasm malignant [Unknown]
  - Pruritus [Not Recovered/Not Resolved]
  - Paraesthesia [Unknown]
  - Product dispensing error [Unknown]

NARRATIVE: CASE EVENT DATE: 2019
